FAERS Safety Report 23031954 (Version 2)
Quarter: 2024Q1

REPORT INFORMATION
  Report Type: Spontaneous
  Country: US (occurrence: US)
  Receive Date: 20231005
  Receipt Date: 20240223
  Transmission Date: 20240410
  Serious: Yes (Other)
  Sender: FDA-Public Use
  Company Number: US-TAKEDA-2023TUS095347

PATIENT
  Age: 77 Year
  Sex: Female

DRUGS (1)
  1. PENTASA [Suspect]
     Active Substance: MESALAMINE
     Indication: Product used for unknown indication
     Dosage: UNK, QD
     Route: 065

REACTIONS (7)
  - Cataract [Unknown]
  - Abdominal discomfort [Unknown]
  - Multiple allergies [Unknown]
  - Eustachian tube dysfunction [Unknown]
  - Intentional overdose [Unknown]
  - Vision blurred [Unknown]
  - Diarrhoea [Unknown]
